FAERS Safety Report 4553971-7 (Version None)
Quarter: 2005Q1

REPORT INFORMATION
  Report Type: 
  Country: None (occurrence: None)
  Receive Date: 20050118
  Receipt Date: 20050105
  Transmission Date: 20050727
  Serious: Yes (Other)
  Sender: FDA-Public Use
  Company Number: JP-JNJFOC-20041205188

PATIENT
  Sex: Female

DRUGS (9)
  1. REMICADE [Suspect]
     Route: 042
  2. REMICADE [Suspect]
     Indication: RHEUMATOID ARTHRITIS
     Route: 042
  3. RHEUMATREX [Concomitant]
     Indication: RHEUMATOID ARTHRITIS
     Route: 049
  4. PREDONINE [Concomitant]
     Indication: RHEUMATOID ARTHRITIS
     Route: 049
  5. RELIFEN [Concomitant]
     Indication: RHEUMATOID ARTHRITIS
     Route: 049
  6. FOLIAMIN [Concomitant]
     Indication: PROPHYLAXIS
  7. MARZULENE [Concomitant]
     Indication: GASTRITIS
     Route: 049
  8. ALFAROL [Concomitant]
     Indication: OSTEOPOROSIS PROPHYLAXIS
     Route: 049
  9. KETOPROFEN [Concomitant]
     Indication: RHEUMATOID ARTHRITIS
     Dosage: ROUTE: EXTERNAL  FORM: POULTICE

REACTIONS (1)
  - MYCOBACTERIUM AVIUM COMPLEX INFECTION [None]
